FAERS Safety Report 5624374-9 (Version None)
Quarter: 2008Q1

REPORT INFORMATION
  Report Type: 
  Country: None (occurrence: None)
  Receive Date: 20080213
  Receipt Date: 20080201
  Transmission Date: 20080703
  Serious: Yes (Hospitalization, Other)
  Sender: FDA-Public Use
  Company Number: US-ASTRAZENECA-2008UW01496

PATIENT
  Age: 13219 Day
  Sex: Male
  Weight: 109.1 kg

DRUGS (1)
  1. SEROQUEL [Suspect]
     Indication: SLEEP DISORDER
     Route: 048
     Dates: start: 20020901, end: 20051201

REACTIONS (4)
  - DIABETES MELLITUS [None]
  - DIABETIC COMPLICATION [None]
  - KETOACIDOSIS [None]
  - PANCREATITIS [None]
